FAERS Safety Report 16151940 (Version 1)
Quarter: 2019Q2

REPORT INFORMATION
  Report Type: Spontaneous
  Country: ES (occurrence: ES)
  Receive Date: 20190403
  Receipt Date: 20190403
  Transmission Date: 20190711
  Serious: Yes (Other)
  Sender: FDA-Public Use
  Company Number: ES-TEVA-2019-ES-1031911

PATIENT
  Age: 72 Year
  Sex: Female

DRUGS (4)
  1. CONDROSAN 400 MG CAPSULAS DURAS, 60 C?PSULAS [Concomitant]
  2. MONTELUKAST (64A) [Suspect]
     Active Substance: MONTELUKAST SODIUM
     Indication: ASTHMA
     Dosage: 10 MILLIGRAM DAILY;
     Route: 065
     Dates: start: 20120917, end: 20181128
  3. PANTOPRAZOL 20 MG 28 COMPRIMIDOS [Concomitant]
     Dosage: 20 MILLIGRAM DAILY;
     Route: 048
     Dates: start: 20171025, end: 20181128
  4. EUTIROX 25 MICROGRAMOS COMPRIMIDOS , 100 COMPRIMIDOS [Concomitant]
     Indication: HYPOTHYROIDISM
     Dosage: 25 MICROGRAM DAILY;

REACTIONS (2)
  - Pruritus [Recovering/Resolving]
  - Hepatitis [Recovering/Resolving]

NARRATIVE: CASE EVENT DATE: 20180906
